FAERS Safety Report 9153915 (Version 1)
Quarter: 2013Q1

REPORT INFORMATION
  Report Type: Spontaneous
  Country: US (occurrence: None)
  Receive Date: 20130306
  Receipt Date: 20130306
  Transmission Date: 20140127
  Serious: Yes (Hospitalization)
  Sender: FDA-Public Use
  Company Number: None

PATIENT
  Age: 66 Year
  Sex: Female
  Weight: 54.7 kg

DRUGS (1)
  1. WARFARIN [Suspect]
     Indication: MITRAL VALVE REPLACEMENT
     Dosage: 3 MG DAILY PO
     Route: 048

REACTIONS (4)
  - International normalised ratio increased [None]
  - Cough [None]
  - Chest pain [None]
  - Insomnia [None]
